FAERS Safety Report 5622503-4 (Version None)
Quarter: 2008Q1

REPORT INFORMATION
  Report Type: 
  Country: None (occurrence: None)
  Receive Date: 20080211
  Receipt Date: 20030618
  Transmission Date: 20080703
  Serious: Yes (Life-Threatening, Hospitalization)
  Sender: FDA-Public Use
  Company Number: IT-MERCK-0306ITA00012

PATIENT
  Age: 59 Year
  Sex: Female

DRUGS (1)
  1. MODURETIC 5-50 [Suspect]
     Indication: OEDEMA PERIPHERAL
     Route: 048

REACTIONS (2)
  - NON-CARDIOGENIC PULMONARY OEDEMA [None]
  - SHOCK [None]
